FAERS Safety Report 8007272-5 (Version None)
Quarter: 2011Q4

REPORT INFORMATION
  Report Type: 
  Country: None (occurrence: None)
  Receive Date: 20111222
  Receipt Date: 20111222
  Transmission Date: 20120403
  Serious: No
  Sender: FDA-Public Use
  Company Number: None

PATIENT
  Age: 64 Year
  Sex: Male
  Weight: 80.9 kg

DRUGS (2)
  1. DABIGATRAN [Suspect]
     Indication: ATRIAL FIBRILLATION
     Dosage: MG PO
     Route: 048
     Dates: start: 20110601, end: 20111128
  2. AMIODARONE HCL [Suspect]
     Indication: ATRIAL FIBRILLATION
     Dosage: MG PO
     Route: 048
     Dates: start: 20110826

REACTIONS (1)
  - ANAEMIA [None]
